FAERS Safety Report 4666665-4 (Version None)
Quarter: 2005Q2

REPORT INFORMATION
  Report Type: 
  Country: None (occurrence: None)
  Receive Date: 20050518
  Receipt Date: 20050504
  Transmission Date: 20051028
  Serious: Yes (Hospitalization)
  Sender: FDA-Public Use
  Company Number: FRWYE631029APR05

PATIENT
  Age: 59 Year
  Sex: Male

DRUGS (5)
  1. BISOPROLOL FUMARATE [Suspect]
     Indication: ESSENTIAL HYPERTENSION
     Dosage: 10 MG 1X PER 1 DAY ORAL
     Route: 048
  2. BENAZEPRIL HCL [Suspect]
     Indication: ESSENTIAL HYPERTENSION
     Dosage: 10 MG 1X PER 1 DAY, ORAL
     Route: 048
  3. COKENZEN                   (CANDESARTAN CILEXETIL/HYDROCHLOROTHIAZIDE) [Suspect]
     Indication: ESSENTIAL HYPERTENSION
     Dosage: 16 MG 1X PER 1 DAY, ORAL
     Route: 048
     Dates: start: 20040101, end: 20050304
  4. OMIX         (TAMSULOSIN HYDROCHLORIDE) [Suspect]
     Dosage: 0.4 MG 1X PER 1 DAY, ORAL
     Route: 048
  5. TIMOPTOL            (TIMOPTOL MALEATE) [Suspect]
     Indication: GLAUCOMA
     Dosage: 1 DOSE 1X PER 1 DAY, OPHTHALMIC
     Route: 047

REACTIONS (6)
  - ANTINUCLEAR ANTIBODY POSITIVE [None]
  - EPISTAXIS [None]
  - HAEMATOMA [None]
  - IDIOPATHIC THROMBOCYTOPENIC PURPURA [None]
  - MOUTH HAEMORRHAGE [None]
  - PETECHIAE [None]
